FAERS Safety Report 23601748 (Version 1)
Quarter: 2024Q1

REPORT INFORMATION
  Report Type: Report from Study
  Country: AU (occurrence: AU)
  Receive Date: 20240306
  Receipt Date: 20240306
  Transmission Date: 20240410
  Serious: Yes (Other)
  Sender: FDA-Public Use
  Company Number: AU-ABBVIE-5661965

PATIENT
  Sex: Female

DRUGS (1)
  1. SKYRIZI [Suspect]
     Active Substance: RISANKIZUMAB-RZAA
     Indication: Product used for unknown indication
     Route: 058

REACTIONS (4)
  - Sinusitis [Not Recovered/Not Resolved]
  - Arthritis [Unknown]
  - Pneumonia [Unknown]
  - Ear, nose and throat disorder [Unknown]

NARRATIVE: CASE EVENT DATE: 20210101
